FAERS Safety Report 16083421 (Version 2)
Quarter: 2019Q1

REPORT INFORMATION
  Report Type: Report from Study
  Country: US (occurrence: US)
  Receive Date: 20190318
  Receipt Date: 20190318
  Transmission Date: 20190418
  Serious: Yes (Disabling)
  Sender: FDA-Public Use
  Company Number: US-ROCHE-2277826

PATIENT
  Age: 58 Year
  Sex: Male

DRUGS (2)
  1. OCREVUS [Suspect]
     Active Substance: OCRELIZUMAB
     Route: 065
     Dates: start: 20170803
  2. OCREVUS [Suspect]
     Active Substance: OCRELIZUMAB
     Indication: PRIMARY PROGRESSIVE MULTIPLE SCLEROSIS
     Dosage: ONGOING; NO
     Route: 065
     Dates: start: 20170720, end: 20180821

REACTIONS (1)
  - Cystitis [Unknown]

NARRATIVE: CASE EVENT DATE: 201811
